FAERS Safety Report 24579806 (Version 2)
Quarter: 2024Q4

REPORT INFORMATION
  Report Type: Spontaneous
  Country: IN (occurrence: IN)
  Receive Date: 20241105
  Receipt Date: 20241119
  Transmission Date: 20250114
  Serious: Yes (Hospitalization, Other)
  Sender: RANBAXY
  Company Number: IN-SUN PHARMACEUTICAL INDUSTRIES LTD-2024R1-476489

PATIENT
  Age: 58 Year
  Sex: Male

DRUGS (6)
  1. CIPROFLOXACIN [Suspect]
     Active Substance: CIPROFLOXACIN
     Indication: Scleritis
     Dosage: 750 MILLIGRAM, BID
     Route: 065
  2. MOXIFLOXACIN [Suspect]
     Active Substance: MOXIFLOXACIN
     Indication: Scleritis
     Dosage: UNK, EVERY 2 HOUR
     Route: 065
  3. MOXIFLOXACIN [Suspect]
     Active Substance: MOXIFLOXACIN
     Dosage: UNK, 1 DOSE EVERY 2 HOURS
     Route: 065
  4. TOBRAMYCIN [Suspect]
     Active Substance: TOBRAMYCIN\TOBRAMYCIN SULFATE
     Indication: Scleritis
     Dosage: UNK UNK, 1DOSE/1HOUR
     Route: 061
  5. ATROPINE [Suspect]
     Active Substance: ATROPINE
     Indication: Scleritis
     Dosage: UNK UNK, TID
     Route: 065
  6. AMIKACIN [Suspect]
     Active Substance: AMIKACIN
     Indication: Scleritis
     Route: 065

REACTIONS (1)
  - Drug resistance [Unknown]
